FAERS Safety Report 7729795-6 (Version None)
Quarter: 2011Q3

REPORT INFORMATION
  Report Type: 
  Country: None (occurrence: None)
  Receive Date: 20110901
  Receipt Date: 20110901
  Transmission Date: 20111222
  Serious: Yes (Hospitalization)
  Sender: FDA-Public Use
  Company Number: None

PATIENT
  Age: 44 Year
  Sex: Female
  Weight: 59.8748 kg

DRUGS (1)
  1. NUCYNTA [Suspect]
     Indication: PROCEDURAL PAIN
     Dosage: 1 TABLET
     Dates: start: 20110722

REACTIONS (4)
  - TACHYPHRENIA [None]
  - PALPITATIONS [None]
  - HYPERTENSION [None]
  - HEART RATE INCREASED [None]
